FAERS Safety Report 5179396-1 (Version None)
Quarter: 2006Q4

REPORT INFORMATION
  Report Type: 
  Country: None (occurrence: None)
  Receive Date: 20061211
  Receipt Date: 20061129
  Transmission Date: 20070319
  Serious: Yes (Other)
  Sender: FDA-Public Use
  Company Number: 150414USA

PATIENT
  Age: 55 Year
  Sex: Female

DRUGS (3)
  1. DOXORUBICIN HYDROCHLORIDE [Suspect]
     Indication: BREAST CANCER
     Dosage: 4 CYCLES EVERY 3 WEEKS (60 MG/M2), INTRAVENOUS
     Route: 042
     Dates: start: 19950101
  2. CYCLOPHOSPHAMIDE [Suspect]
     Indication: BREAST CANCER
     Dosage: 4 CYCLES EVERY 3 WEEKS (600 MG/M2) INTRAVENOUS
     Route: 042
     Dates: start: 19950101
  3. TAMOXIFEN CITRATE [Suspect]
     Indication: BREAST CANCER
     Dates: start: 19960101, end: 20010101

REACTIONS (1)
  - TONGUE NEOPLASM MALIGNANT STAGE UNSPECIFIED [None]
